FAERS Safety Report 4570473-2 (Version None)
Quarter: 2005Q1

REPORT INFORMATION
  Report Type: 
  Country: None (occurrence: None)
  Receive Date: 20050203
  Receipt Date: 20050203
  Transmission Date: 20050727
  Serious: Yes (Other)
  Sender: FDA-Public Use
  Company Number: None

PATIENT
  Age: 25 Year
  Sex: Male

DRUGS (5)
  1. DIFLUCAN [Suspect]
     Indication: FUNGAL INFECTION
     Dosage: 200MG   Q24H   INTRAVENOU
     Route: 042
     Dates: start: 20050131, end: 20050131
  2. VANCOMYCIN [Concomitant]
  3. MAXIPIME [Concomitant]
  4. ZOFRAN [Concomitant]
  5. MORPHINE [Concomitant]

REACTIONS (1)
  - PRURITUS [None]
